FAERS Safety Report 7793493-3 (Version None)
Quarter: 2011Q4

REPORT INFORMATION
  Report Type: 
  Country: None (occurrence: None)
  Receive Date: 20111003
  Receipt Date: 20110119
  Transmission Date: 20120403
  Serious: No
  Sender: FDA-Public Use
  Company Number: US-BAYER-2011-006988

PATIENT
  Age: 79 Year
  Sex: Female

DRUGS (2)
  1. DULCOLAX [DOCUSATE SODIUM] [Concomitant]
  2. CIPRO [Suspect]
     Indication: BRONCHITIS
     Dosage: 500 MG, BID
     Route: 048
     Dates: start: 20110114

REACTIONS (3)
  - DRUG INEFFECTIVE [None]
  - CONSTIPATION [None]
  - PYREXIA [None]
